FAERS Safety Report 17041868 (Version 36)
Quarter: 2023Q2

REPORT INFORMATION
  Report Type: Report from Study
  Country: GB (occurrence: GB)
  Receive Date: 20191118
  Receipt Date: 20230620
  Transmission Date: 20230722
  Serious: Yes (Life-Threatening, Hospitalization, Other)
  Sender: FDA-Public Use
  Company Number: None

PATIENT
  Age: 45 Year
  Sex: Female
  Weight: 80 kg

DRUGS (93)
  1. DOCETAXEL [Suspect]
     Active Substance: DOCETAXEL
     Indication: Breast cancer metastatic
     Route: 042
     Dates: start: 20150814, end: 20151117
  2. EXEMESTANE [Suspect]
     Active Substance: EXEMESTANE
     Indication: Breast cancer metastatic
     Dosage: CUMULATIVE DOSE : 28900.0 MG
     Route: 048
     Dates: start: 20150518
  3. IBANDRONIC ACID [Suspect]
     Active Substance: IBANDRONIC ACID
     Indication: Metastases to bone
     Route: 048
     Dates: start: 20150518
  4. ANASTROZOLE [Suspect]
     Active Substance: ANASTROZOLE
     Indication: Product used for unknown indication
     Route: 048
     Dates: start: 20150616
  5. TRASTUZUMAB [Suspect]
     Active Substance: TRASTUZUMAB
     Indication: Breast cancer metastatic
     Dosage: LOADING DOSE, SUBCUTANEOUS, INTRAVENOUS DRIP
     Route: 042
     Dates: start: 20151217, end: 20160308
  6. PERTUZUMAB [Suspect]
     Active Substance: PERTUZUMAB
     Indication: Breast cancer metastatic
     Dosage: LOADING DOSE
     Route: 042
     Dates: start: 20151217, end: 20160308
  7. HYALURONIDASE (HUMAN RECOMBINANT)\TRASTUZUMAB [Suspect]
     Active Substance: HYALURONIDASE (HUMAN RECOMBINANT)\TRASTUZUMAB
     Indication: Breast cancer metastatic
     Dosage: MAINTAINANCE DOSE
     Route: 058
     Dates: start: 20150825, end: 20151117
  8. EXEMESTANE [Suspect]
     Active Substance: EXEMESTANE
     Indication: Breast cancer metastatic
     Dosage: METASTATIC BREAST CANCER
     Route: 048
  9. DOCETAXEL [Suspect]
     Active Substance: DOCETAXEL
     Indication: Breast cancer metastatic
     Dosage: 120 MG, TIW
     Route: 042
     Dates: start: 20150814, end: 20151117
  10. DENOSUMAB [Suspect]
     Active Substance: DENOSUMAB
     Indication: Product used for unknown indication
  11. SYNVISC [Suspect]
     Active Substance: HYLAN G-F 20
     Indication: Product used for unknown indication
  12. TAXOTERE [Suspect]
     Active Substance: DOCETAXEL
     Indication: Breast cancer metastatic
     Dosage: 120 MG, TIW, INTRAVENOUS INFUSION
     Dates: start: 20150814
  13. HYALURONATE SODIUM [Suspect]
     Active Substance: HYALURONATE SODIUM
     Indication: Breast cancer metastatic
     Dosage: 600 MILLIGRAM, Q3WK
     Route: 058
     Dates: start: 20160308, end: 20160308
  14. DEXAMETHASONE [Concomitant]
     Active Substance: DEXAMETHASONE
     Dosage: FOR 3 DAYS EVERY 3 WEEKS
     Route: 048
     Dates: start: 20150803
  15. BISOPROLOL [Concomitant]
     Active Substance: BISOPROLOL
     Indication: Product used for unknown indication
  16. DENOSUMAB [Concomitant]
     Active Substance: DENOSUMAB
     Route: 058
     Dates: start: 20160127, end: 201802
  17. CIPROFLOXACIN [Concomitant]
     Active Substance: CIPROFLOXACIN
     Indication: Device related infection
     Dosage: 500 MILLIGRAM, BID
     Route: 048
     Dates: start: 20160908
  18. AMOXICILLIN\CLAVULANATE POTASSIUM [Concomitant]
     Active Substance: AMOXICILLIN\CLAVULANATE POTASSIUM
     Indication: Vascular device infection
     Dosage: 625 MILLIGRAM,  TID
     Route: 048
     Dates: start: 20160915
  19. BENZYDAMINE HYDROCHLORIDE [Concomitant]
     Active Substance: BENZYDAMINE HYDROCHLORIDE
     Indication: Metastases to bone
     Route: 065
     Dates: start: 20150315, end: 20150817
  20. GENTAMICIN [Concomitant]
     Active Substance: GENTAMICIN
     Indication: Device related infection
     Route: 065
     Dates: start: 20151130, end: 20151209
  21. MEROPENEM [Concomitant]
     Active Substance: MEROPENEM
     Indication: Product used for unknown indication
     Dosage: 1 GRAM, TID
     Route: 042
     Dates: start: 20160918
  22. ACETAMINOPHEN [Concomitant]
     Active Substance: ACETAMINOPHEN
     Indication: Device related infection
     Dosage: 1 GRAM, QID
     Route: 048
  23. RAMIPRIL [Concomitant]
     Active Substance: RAMIPRIL
     Indication: Product used for unknown indication
     Route: 065
  24. PIPERACILLIN SODIUM\TAZOBACTAM SODIUM [Concomitant]
     Active Substance: PIPERACILLIN SODIUM\TAZOBACTAM SODIUM
     Indication: Device related infection
     Dosage: 600 MILLIGRAM EVERY 3 WEEKS
     Route: 058
     Dates: start: 20160723
  25. IRON [Concomitant]
     Active Substance: IRON
     Indication: Serum ferritin decreased
     Route: 048
  26. DENOSUMAB [Concomitant]
     Active Substance: DENOSUMAB
     Indication: Product used for unknown indication
     Dosage: 120 MG, IN EVERY 1 MONTH
     Route: 058
     Dates: start: 20160127, end: 201802
  27. IBANDRONIC ACID [Concomitant]
     Active Substance: IBANDRONIC ACID
     Indication: Metastases to bone
     Route: 048
     Dates: start: 20150518
  28. CALCIUM [Concomitant]
     Active Substance: CALCIUM
  29. BENZYDAMINE HYDROCHLORIDE [Concomitant]
     Active Substance: BENZYDAMINE HYDROCHLORIDE
     Route: 048
     Dates: start: 20150308, end: 20150817
  30. HYALURONATE SODIUM [Suspect]
     Active Substance: HYALURONATE SODIUM
     Indication: Product used for unknown indication
     Dates: end: 20151117
  31. BISOPROLOL [Concomitant]
     Active Substance: BISOPROLOL
     Indication: Product used for unknown indication
     Dosage: 1000 MG, QD
     Route: 048
     Dates: start: 20160908
  32. CIPROFLOXACIN [Concomitant]
     Active Substance: CIPROFLOXACIN
     Indication: Device related infection
     Dosage: 1000MG
     Route: 048
     Dates: start: 20150908
  33. BENZYDAMINE HYDROCHLORIDE [Concomitant]
     Active Substance: BENZYDAMINE HYDROCHLORIDE
     Indication: Metastases to bone
     Dosage: 900 MILLILITER
     Route: 065
     Dates: end: 20150817
  34. IRON [Concomitant]
     Active Substance: IRON
     Indication: Serum ferritin decreased
     Dosage: 3 GRAM, QD
     Route: 048
     Dates: start: 20160918
  35. ACETAMINOPHEN [Concomitant]
     Active Substance: ACETAMINOPHEN
  36. HYALURONATE SODIUM [Suspect]
     Active Substance: HYALURONATE SODIUM
     Indication: Product used for unknown indication
     Route: 058
     Dates: start: 20160723
  37. DENOSUMAB [Concomitant]
     Active Substance: DENOSUMAB
     Indication: Product used for unknown indication
     Dates: start: 20150803
  38. MEROPENEM [Concomitant]
     Active Substance: MEROPENEM
     Indication: Device related infection
     Dates: start: 20141211, end: 20141224
  39. HYALURONATE SODIUM [Suspect]
     Active Substance: HYALURONATE SODIUM
     Indication: Product used for unknown indication
     Dosage: 600 MG, Q3W
     Dates: start: 20160523
  40. EXEMESTANE [Suspect]
     Active Substance: EXEMESTANE
     Indication: Product used for unknown indication
     Dosage: 600 MILLIGRAM, Q3WK
     Dates: start: 20160723
  41. CIPROFLOXACIN [Concomitant]
     Active Substance: CIPROFLOXACIN
     Indication: Product used for unknown indication
     Dates: start: 20150803
  42. BENZYDAMINE HYDROCHLORIDE [Concomitant]
     Active Substance: BENZYDAMINE HYDROCHLORIDE
     Indication: Product used for unknown indication
     Dates: start: 20150315, end: 20150817
  43. DENOSUMAB [Concomitant]
     Active Substance: DENOSUMAB
     Dosage: 1 EVERY 3 WEEKS, 3 DAYS 2 WEEKS
     Route: 058
     Dates: start: 20150803
  44. DENOSUMAB [Concomitant]
     Active Substance: DENOSUMAB
     Route: 058
     Dates: start: 20160127
  45. PERTUZUMAB [Suspect]
     Active Substance: PERTUZUMAB
     Indication: Breast cancer metastatic
     Dosage: LOADING DOSE
     Route: 042
     Dates: start: 20150102, end: 20160102
  46. PERTUZUMAB [Suspect]
     Active Substance: PERTUZUMAB
     Indication: Breast cancer metastatic
     Dosage: LOADING DOSE
     Route: 042
     Dates: start: 20150130, end: 20161024
  47. TRASTUZUMAB [Suspect]
     Active Substance: TRASTUZUMAB
     Indication: Breast cancer metastatic
     Route: 042
     Dates: start: 20150105, end: 20150105
  48. TRASTUZUMAB [Suspect]
     Active Substance: TRASTUZUMAB
     Indication: Breast cancer metastatic
     Dosage: LOADING DOSE, SUBCUTANEOUS, INTRAVENOUS DRIP
     Route: 042
     Dates: start: 20150130, end: 20161003
  49. PERTUZUMAB [Suspect]
     Active Substance: PERTUZUMAB
     Indication: Breast cancer metastatic
     Dosage: MAINTAINANCE DOSE
     Route: 042
     Dates: start: 20150825, end: 20151117
  50. HYALURONIDASE (HUMAN RECOMBINANT)\TRASTUZUMAB [Suspect]
     Active Substance: HYALURONIDASE (HUMAN RECOMBINANT)\TRASTUZUMAB
     Indication: Product used for unknown indication
     Dosage: STOPPED
     Route: 058
     Dates: start: 20160308, end: 20160308
  51. HYALURONIDASE (HUMAN RECOMBINANT)\TRASTUZUMAB [Suspect]
     Active Substance: HYALURONIDASE (HUMAN RECOMBINANT)\TRASTUZUMAB
     Indication: Product used for unknown indication
     Route: 058
     Dates: start: 20160623
  52. PERTUZUMAB [Suspect]
     Active Substance: PERTUZUMAB
     Indication: Breast cancer metastatic
     Dosage: MAINTENANCE DOSE
     Route: 042
     Dates: start: 20160715
  53. TRASTUZUMAB [Suspect]
     Active Substance: TRASTUZUMAB
     Indication: Breast cancer metastatic
     Dosage: LOADING DOSE
     Route: 042
     Dates: start: 20150803, end: 20150803
  54. TRASTUZUMAB [Suspect]
     Active Substance: TRASTUZUMAB
     Indication: Breast cancer metastatic
     Dosage: LOADING DOSE, SUBCUTANEOUS, SOLUTION FOR INJECTION
     Route: 058
     Dates: start: 20160723
  55. TRASTUZUMAB [Suspect]
     Active Substance: TRASTUZUMAB
     Indication: Breast cancer metastatic
     Dosage: LOADING DOSE, SUBCUTANEOUS, SOLUTION FOR INJECTION
     Route: 058
     Dates: start: 20150825, end: 20151117
  56. DOCETAXEL [Suspect]
     Active Substance: DOCETAXEL
     Indication: Breast cancer metastatic
     Route: 042
     Dates: start: 20150814, end: 20151117
  57. HYALURONIDASE (HUMAN RECOMBINANT)\TRASTUZUMAB [Suspect]
     Active Substance: HYALURONIDASE (HUMAN RECOMBINANT)\TRASTUZUMAB
     Indication: Product used for unknown indication
     Dosage: STOPPED
     Route: 042
     Dates: end: 20160308
  58. TRASTUZUMAB [Suspect]
     Active Substance: TRASTUZUMAB
     Indication: Breast cancer metastatic
     Dosage: 600 MG, Q3W, SUBCUTANEOUS, SOLUTION FOR INJECTION
     Route: 042
     Dates: start: 20160623
  59. PERTUZUMAB [Suspect]
     Active Substance: PERTUZUMAB
     Indication: Breast cancer metastatic
     Dosage: DATE OF MOST RECENT DOSE (420 MG) OF PERTUZUMAB 08/MAR/2016
     Route: 042
     Dates: start: 20151217, end: 20160308
  60. HYALURONIDASE (HUMAN RECOMBINANT)\TRASTUZUMAB [Suspect]
     Active Substance: HYALURONIDASE (HUMAN RECOMBINANT)\TRASTUZUMAB
     Indication: Breast cancer metastatic
     Dosage: 600 MILLIGRAM, Q3WK
     Route: 058
     Dates: start: 20160723
  61. HYALURONATE SODIUM [Suspect]
     Active Substance: HYALURONATE SODIUM
     Indication: Breast cancer metastatic
     Dosage: 600 MILLIGRAM, 3 TIMES IN A WEEK, MAINTAINANCE DOSE
     Route: 058
     Dates: start: 20150825, end: 20151117
  62. HYALURONATE SODIUM [Suspect]
     Active Substance: HYALURONATE SODIUM
     Indication: Product used for unknown indication
     Dosage: 600 MILLIGRAM, Q3W
     Route: 058
     Dates: start: 20160623
  63. CIPROFLOXACIN [Concomitant]
     Active Substance: CIPROFLOXACIN
     Indication: Vascular device infection
     Dosage: 500 MILLIGRAM, BID
     Route: 048
     Dates: start: 20151210, end: 20151215
  64. BENZYDAMINE HYDROCHLORIDE [Concomitant]
     Active Substance: BENZYDAMINE HYDROCHLORIDE
     Indication: Gingival swelling
     Dosage: 15 MILLIGRAM,BID
     Route: 048
     Dates: start: 20150308, end: 20150817
  65. BENZYDAMINE HYDROCHLORIDE [Concomitant]
     Active Substance: BENZYDAMINE HYDROCHLORIDE
     Indication: Mucosal inflammation
     Dosage: 15 MILLIGRAM, QID
     Route: 048
     Dates: start: 201508
  66. ACETAMINOPHEN [Concomitant]
     Active Substance: ACETAMINOPHEN
     Indication: Device related infection
     Dosage: 1 GRAM, QID
     Route: 048
  67. ACETAMINOPHEN [Concomitant]
     Active Substance: ACETAMINOPHEN
     Dosage: 500 MILLIGRAM, QID
     Route: 048
     Dates: start: 20141211, end: 20141224
  68. RAMIPRIL [Concomitant]
     Active Substance: RAMIPRIL
     Indication: Ejection fraction decreased
     Dosage: 10 MILLIGRAM
     Route: 048
     Dates: start: 201603
  69. TRASTUZUMAB [Suspect]
     Active Substance: TRASTUZUMAB
     Indication: Product used for unknown indication
     Dosage: LOADING DOSE, SUBCUTANEOUS, SOLUTION FOR INJECTION
     Route: 058
     Dates: start: 20160308, end: 20160308
  70. DOCETAXEL [Suspect]
     Active Substance: DOCETAXEL
     Indication: Breast cancer metastatic
     Dosage: 120 MILLIGRAM, Q3WK
     Route: 042
     Dates: start: 20150804, end: 20150804
  71. PIPERACILLIN SODIUM\TAZOBACTAM SODIUM [Concomitant]
     Active Substance: PIPERACILLIN SODIUM\TAZOBACTAM SODIUM
     Indication: Device related infection
     Dosage: 600 MILLIGRAM EVERY 3 WEEKS
     Route: 058
     Dates: start: 20151130, end: 20151209
  72. BENZYDAMINE HYDROCHLORIDE [Concomitant]
     Active Substance: BENZYDAMINE HYDROCHLORIDE
     Indication: Metastases to bone
     Route: 048
     Dates: start: 20150308
  73. CIPROFLOXACIN [Concomitant]
     Active Substance: CIPROFLOXACIN
     Indication: Device related infection
     Dosage: 500 MILLIGRAM, BID
     Route: 048
     Dates: start: 20160908
  74. CIPROFLOXACIN [Concomitant]
     Active Substance: CIPROFLOXACIN
     Indication: Device related infection
     Dosage: 500 MILLIGRAM, BID
     Route: 048
     Dates: start: 20151110, end: 20151215
  75. DENOSUMAB [Concomitant]
     Active Substance: DENOSUMAB
     Route: 058
     Dates: start: 20160127
  76. MEROPENEM [Concomitant]
     Active Substance: MEROPENEM
     Indication: Product used for unknown indication
     Dosage: 1 GRAM, TID
     Route: 042
     Dates: start: 20160918
  77. ACETAMINOPHEN [Concomitant]
     Active Substance: ACETAMINOPHEN
     Indication: Device related infection
     Dosage: 1 GRAM, QID
     Route: 048
     Dates: start: 20141211, end: 20141224
  78. ACETAMINOPHEN [Concomitant]
     Active Substance: ACETAMINOPHEN
     Indication: Device related infection
     Route: 048
     Dates: start: 20160916
  79. CIPROFLOXACIN [Concomitant]
     Active Substance: CIPROFLOXACIN
     Indication: Device related infection
     Dosage: 500 MILLIGRAM, BID
     Route: 048
     Dates: start: 20160908
  80. TAXOTERE [Suspect]
     Active Substance: DOCETAXEL
     Indication: Breast cancer metastatic
     Dosage: 120 MG, Q3W, INTRAVENOUS INFUSION
     Route: 042
     Dates: start: 20150814, end: 20151117
  81. DOCETAXEL [Suspect]
     Active Substance: DOCETAXEL
     Indication: Breast cancer metastatic
     Route: 042
     Dates: start: 20151217, end: 20160308
  82. AMOXICILLIN\CLAVULANATE POTASSIUM [Concomitant]
     Active Substance: AMOXICILLIN\CLAVULANATE POTASSIUM
     Indication: Product used for unknown indication
     Dosage: 1875 MG, QD
     Route: 048
     Dates: start: 20160915
  83. AMOXICILLIN\CLAVULANATE POTASSIUM [Concomitant]
     Active Substance: AMOXICILLIN\CLAVULANATE POTASSIUM
     Indication: Product used for unknown indication
     Dosage: 120 MG
     Route: 058
     Dates: start: 20160127
  84. DENOSUMAB [Concomitant]
     Active Substance: DENOSUMAB
     Dosage: 3 DAYS EVERY 3 WEEKS
     Route: 058
     Dates: start: 20150803, end: 201802
  85. BENZYDAMINE HYDROCHLORIDE [Concomitant]
     Active Substance: BENZYDAMINE HYDROCHLORIDE
     Indication: Metastases to bone
     Route: 048
     Dates: start: 20150803, end: 20150817
  86. DOCETAXEL [Suspect]
     Active Substance: DOCETAXEL
     Indication: Breast cancer metastatic
     Route: 042
     Dates: start: 20150808, end: 20151117
  87. DOCETAXEL [Suspect]
     Active Substance: DOCETAXEL
     Indication: Breast cancer metastatic
     Route: 042
     Dates: start: 20150217, end: 20160308
  88. TRASTUZUMAB [Suspect]
     Active Substance: TRASTUZUMAB
     Indication: Product used for unknown indication
     Dosage: 1800 MILLIGRAM, Q3WK
     Dates: start: 20160623
  89. EXEMESTANE [Suspect]
     Active Substance: EXEMESTANE
     Indication: Metastases to bone
     Dates: start: 20180723
  90. IBANDRONIC ACID [Suspect]
     Active Substance: IBANDRONIC ACID
     Indication: Product used for unknown indication
     Dates: start: 20180715
  91. DOCETAXEL [Suspect]
     Active Substance: DOCETAXEL
     Indication: Product used for unknown indication
     Route: 042
     Dates: start: 20150106, end: 20150424
  92. PERTUZUMAB [Suspect]
     Active Substance: PERTUZUMAB
     Indication: Breast cancer metastatic
     Dosage: ONE CYCLE (LOADING DOSE)
     Route: 042
     Dates: start: 20150804, end: 20150804
  93. PERTUZUMAB [Suspect]
     Active Substance: PERTUZUMAB
     Indication: Breast cancer metastatic
     Dosage: LOADING DOSE
     Route: 042
     Dates: start: 20160623, end: 20160623

REACTIONS (18)
  - Vascular device infection [Recovered/Resolved]
  - Sepsis [Recovered/Resolved]
  - Lymphoedema [Recovered/Resolved]
  - Anaemia [Recovered/Resolved]
  - Mucosal inflammation [Recovered/Resolved]
  - Epistaxis [Recovered/Resolved]
  - Gastrooesophageal reflux disease [Recovered/Resolved]
  - Influenza like illness [Recovered/Resolved]
  - Diarrhoea [Recovered/Resolved]
  - Fatigue [Recovered/Resolved]
  - Osteonecrosis of jaw [Not Recovered/Not Resolved]
  - Vascular device infection [Recovered/Resolved]
  - Device related infection [Recovered/Resolved]
  - Gingival swelling [Recovered/Resolved]
  - Hot flush [Unknown]
  - Ejection fraction decreased [Recovered/Resolved]
  - Rash [Recovered/Resolved]
  - Alopecia [Recovered/Resolved]

NARRATIVE: CASE EVENT DATE: 20150801
